FAERS Safety Report 9551820 (Version 1)
Quarter: 2013Q3

REPORT INFORMATION
  Report Type: Spontaneous
  Country: US (occurrence: None)
  Receive Date: 20130724
  Receipt Date: 20130724
  Transmission Date: 20140515
  Serious: Yes (Other)
  Sender: FDA-Public Use
  Company Number: PHEH2013US000982

PATIENT
  Age: 88 Year
  Sex: Female

DRUGS (3)
  1. DIOVAN HCT (VALSARTAN, HYDROCHLOROTHIAZIDE) UNKNOWN [Suspect]
     Indication: LABILE HYPERTENSION
     Dosage: 1 DF (160 MG VALS AND 25 MG HCTZ), UNK
  2. METOPROL TARTRATE [Suspect]
  3. ECOTRIN (ACETYLSALICYLIC ACID) [Suspect]
     Indication: HYPERTENSION
     Dosage: 325 MG, UNK

REACTIONS (2)
  - Hypertension [None]
  - Nervousness [None]
